FAERS Safety Report 9658082 (Version 1)
Quarter: 2013Q4

REPORT INFORMATION
  Report Type: Spontaneous
  Country: US (occurrence: US)
  Receive Date: 20131030
  Receipt Date: 20131030
  Transmission Date: 20140711
  Serious: No
  Sender: FDA-Public Use
  Company Number: US-009507513-1310USA013333

PATIENT
  Age: 55 Year
  Sex: Female

DRUGS (1)
  1. ISENTRESS [Suspect]
     Indication: HIV INFECTION
     Dosage: 400 MG, 1 TABLET, TWICE DAILY
     Route: 048
     Dates: start: 201102

REACTIONS (2)
  - Back disorder [Unknown]
  - Feeling abnormal [Not Recovered/Not Resolved]
